FAERS Safety Report 7431697-X (Version None)
Quarter: 2011Q2

REPORT INFORMATION
  Report Type: 
  Country: None (occurrence: None)
  Receive Date: 20110422
  Receipt Date: 20110411
  Transmission Date: 20111010
  Serious: Yes (Hospitalization)
  Sender: FDA-Public Use
  Company Number: US-BIOGENIDEC-2011BI010713

PATIENT
  Age: 37 Year
  Sex: Female

DRUGS (2)
  1. TYSABRI [Suspect]
     Indication: MULTIPLE SCLEROSIS
     Route: 042
     Dates: start: 20070928, end: 20110101
  2. AVONEX [Concomitant]
     Indication: MULTIPLE SCLEROSIS
     Route: 030
     Dates: start: 20031024

REACTIONS (12)
  - MYALGIA [None]
  - OPTIC NEURITIS [None]
  - URINARY TRACT INFECTION [None]
  - ANAEMIA [None]
  - OVARIAN CYST [None]
  - BONE MARROW DISORDER [None]
  - PYELONEPHRITIS [None]
  - PROTEIN TOTAL ABNORMAL [None]
  - ADVERSE DRUG REACTION [None]
  - NEPHROLITHIASIS [None]
  - PYREXIA [None]
  - LEUKOCYTOSIS [None]
